FAERS Safety Report 8382559-5 (Version None)
Quarter: 2012Q2

REPORT INFORMATION
  Report Type: 
  Country: None (occurrence: None)
  Receive Date: 20120524
  Receipt Date: 20120518
  Transmission Date: 20120825
  Serious: Yes (Life-Threatening, Hospitalization)
  Sender: FDA-Public Use
  Company Number: US-JNJFOC-20120516311

PATIENT
  Age: 60 Year
  Sex: Female
  Weight: 88.81 kg

DRUGS (1)
  1. XARELTO [Suspect]
     Indication: THROMBOSIS PROPHYLAXIS
     Route: 048

REACTIONS (5)
  - NAUSEA [None]
  - DIZZINESS [None]
  - HEADACHE [None]
  - PULMONARY EMBOLISM [None]
  - VOMITING [None]
